FAERS Safety Report 24410487 (Version 2)
Quarter: 2024Q4

REPORT INFORMATION
  Report Type: Spontaneous
  Country: CA (occurrence: None)
  Receive Date: 20241008
  Receipt Date: 20241010
  Transmission Date: 20250115
  Serious: Yes (Hospitalization, Other)
  Sender: ORION
  Company Number: CA-PFIZER INC-202400269654

PATIENT
  Age: 17 Year
  Sex: Male
  Weight: 72.6 kg

DRUGS (8)
  1. METHOTREXATE [Suspect]
     Active Substance: METHOTREXATE
     Indication: Product used for unknown indication
  2. PANTOPRAZOLE [Concomitant]
     Active Substance: PANTOPRAZOLE
  3. TYLENOL [Concomitant]
     Active Substance: ACETAMINOPHEN
  4. VITAMIN D NOS [Concomitant]
     Active Substance: CHOLECALCIFEROL\ERGOCALCIFEROL
  5. FOLIC ACID [Concomitant]
     Active Substance: FOLIC ACID
  6. IRON [Concomitant]
     Active Substance: IRON
  7. MODULIN [Concomitant]
  8. ABRILADA [Concomitant]
     Active Substance: ADALIMUMAB-AFZB
     Dosage: ONGOING
     Dates: start: 20241002

REACTIONS (9)
  - Anaemia [Unknown]
  - Haematemesis [Unknown]
  - Pyrexia [Unknown]
  - Faeces discoloured [Unknown]
  - Haematochezia [Unknown]
  - Intra-abdominal haemorrhage [Unknown]
  - Therapy non-responder [Unknown]
  - Enteritis [Unknown]
  - Constipation [Unknown]
